FAERS Safety Report 8418119-7 (Version None)
Quarter: 2012Q2

REPORT INFORMATION
  Report Type: 
  Country: None (occurrence: None)
  Receive Date: 20120607
  Receipt Date: 20120529
  Transmission Date: 20120825
  Serious: Yes (Other)
  Sender: FDA-Public Use
  Company Number: US-TEVA-340587USA

PATIENT
  Sex: Female
  Weight: 54.48 kg

DRUGS (7)
  1. LEVOTHYROXINE SODIUM [Concomitant]
     Indication: THYROID DISORDER
     Route: 048
  2. DILTIAZEM HCL [Concomitant]
     Indication: HYPERTENSION
     Dosage: 360 MILLIGRAM;
     Route: 048
  3. METHYLPHENIDATE HCL [Concomitant]
     Indication: NARCOLEPSY
     Route: 048
  4. OBETROL [Concomitant]
     Indication: NARCOLEPSY
     Dosage: 90 MILLIGRAM;
     Route: 048
  5. NUVIGIL [Suspect]
     Indication: NARCOLEPSY
     Route: 048
  6. FENTANYL [Concomitant]
     Indication: NARCOLEPSY
     Route: 061
  7. QUINAPRIL HYDROCHLORIDE [Concomitant]
     Indication: HYPERTENSION
     Dosage: 40 MILLIGRAM;
     Route: 048

REACTIONS (1)
  - DRUG WITHDRAWAL SYNDROME [None]
